FAERS Safety Report 25780376 (Version 4)
Quarter: 2025Q4

REPORT INFORMATION
  Report Type: Spontaneous
  Country: US (occurrence: US)
  Receive Date: 20250909
  Receipt Date: 20251028
  Transmission Date: 20260118
  Serious: Yes (Other)
  Sender: SANOFI AVENTIS
  Company Number: US-SANOFI-02641936

PATIENT
  Age: 27 Year
  Sex: Male

DRUGS (2)
  1. TZIELD [Suspect]
     Active Substance: TEPLIZUMAB-MZWV
     Indication: Type 1 diabetes mellitus
     Dosage: UNK, QD
     Route: 042
     Dates: start: 20250809, end: 20250822
  2. TYLENOL [Concomitant]
     Active Substance: ACETAMINOPHEN
     Indication: Premedication
     Dosage: 500 MG, QD
     Route: 048
     Dates: start: 20250809, end: 20250821

REACTIONS (7)
  - Musculoskeletal pain [Recovered/Resolved]
  - Paraesthesia [Recovered/Resolved]
  - Back pain [Unknown]
  - Rash [Recovered/Resolved]
  - Genital rash [Recovered/Resolved]
  - Tonsillitis [Recovered/Resolved]
  - Off label use [Unknown]

NARRATIVE: CASE EVENT DATE: 20250801
